FAERS Safety Report 5393961-8 (Version None)
Quarter: 2007Q3

REPORT INFORMATION
  Report Type: 
  Country: None (occurrence: None)
  Receive Date: 20070723
  Receipt Date: 20061204
  Transmission Date: 20080115
  Serious: No
  Sender: FDA-Public Use
  Company Number: A0630231A

PATIENT
  Age: 47 Year
  Sex: Female

DRUGS (8)
  1. AVANDIA [Suspect]
     Dosage: 4MG TWICE PER DAY
     Route: 048
     Dates: start: 20061130
  2. TENORMIN [Concomitant]
  3. ALDACTONE [Concomitant]
  4. HYDROCHLOROTHIAZIDE [Concomitant]
  5. ZYRTEC [Concomitant]
  6. WELLBUTRIN [Concomitant]
  7. ATIVAN [Concomitant]
  8. METHADONE HCL [Concomitant]

REACTIONS (4)
  - BLOOD GLUCOSE DECREASED [None]
  - DECREASED APPETITE [None]
  - NAUSEA [None]
  - TREMOR [None]
